FAERS Safety Report 11636263 (Version 5)
Quarter: 2016Q2

REPORT INFORMATION
  Report Type: Report from Study
  Country: US (occurrence: US)
  Receive Date: 20151016
  Receipt Date: 20160405
  Transmission Date: 20160815
  Serious: No
  Sender: FDA-Public Use
  Company Number: US-AMGEN-USASL2015101560

PATIENT
  Age: 59 Year
  Sex: Female

DRUGS (1)
  1. ENBREL [Suspect]
     Active Substance: ETANERCEPT
     Indication: INFLAMMATION
     Dosage: UNK UNK, UNK
     Route: 065
     Dates: start: 201407

REACTIONS (7)
  - Product label issue [Unknown]
  - Off label use [Unknown]
  - Drug ineffective [Unknown]
  - Visual impairment [Unknown]
  - Cough [Unknown]
  - Device issue [Unknown]
  - Injection site haemorrhage [Unknown]

NARRATIVE: CASE EVENT DATE: 201407
